FAERS Safety Report 8495396-8 (Version None)
Quarter: 2012Q3

REPORT INFORMATION
  Report Type: 
  Country: None (occurrence: None)
  Receive Date: 20120709
  Receipt Date: 20120703
  Transmission Date: 20120928
  Serious: Yes (Hospitalization)
  Sender: FDA-Public Use
  Company Number: US-AMGEN-USACT2012041711

PATIENT
  Age: 47 Year
  Sex: Male
  Weight: 70.884 kg

DRUGS (11)
  1. CLOBETASOL PROPIONATE [Concomitant]
     Dosage: UNK
     Dates: start: 20120313
  2. PANITUMUMAB [Suspect]
     Indication: BILE DUCT CANCER
     Dosage: 6 MG/KG, Q2WK
     Route: 042
     Dates: start: 20120313, end: 20120605
  3. ELOXATIN [Concomitant]
     Indication: BILE DUCT CANCER
     Dosage: 85 MG/M2, Q2WK
     Route: 042
     Dates: start: 20120228, end: 20120605
  4. MINOCYCLINE HCL [Concomitant]
     Dosage: 100 MG, BID
     Route: 048
     Dates: start: 20120622, end: 20120630
  5. CLEOCIN T [Concomitant]
     Dosage: UNK
     Dates: start: 20120620
  6. COMPAZINE [Concomitant]
     Dosage: 10 MG, UNK
     Dates: start: 20120214
  7. OXYCODONE HCL [Concomitant]
     Indication: PAIN
     Dosage: 10 MG, PRN
     Route: 048
     Dates: start: 20120223
  8. ATIVAN [Concomitant]
     Dosage: 0.5 MG, UNK
     Dates: start: 20120214
  9. GEMCITABINE [Concomitant]
     Indication: BILE DUCT CANCER
     Dosage: 1000 MG/M2, Q2WK
     Route: 042
     Dates: start: 20120228, end: 20120605
  10. MIRALAX [Concomitant]
     Dosage: 17 G, UNK
     Dates: start: 20120214
  11. ZOFRAN [Concomitant]
     Dosage: 8 MG, UNK
     Dates: start: 20120214

REACTIONS (3)
  - PYREXIA [None]
  - POLYARTHRITIS [None]
  - ARTHRALGIA [None]
